FAERS Safety Report 6497359-0 (Version None)
Quarter: 2009Q4

REPORT INFORMATION
  Report Type: 
  Country: None (occurrence: None)
  Receive Date: 20091215
  Receipt Date: 20091017
  Transmission Date: 20100525
  Serious: No
  Sender: FDA-Public Use
  Company Number: A0811800A

PATIENT
  Age: 52 Year
  Sex: Male

DRUGS (2)
  1. AVODART [Suspect]
     Indication: URINARY TRACT DISORDER
     Dosage: .5MG PER DAY
     Route: 048
     Dates: start: 20090901
  2. METOPROLOL [Concomitant]

REACTIONS (1)
  - ALOPECIA [None]
